FAERS Safety Report 6359694-6 (Version None)
Quarter: 2009Q3

REPORT INFORMATION
  Report Type: 
  Country: None (occurrence: None)
  Receive Date: 20090917
  Receipt Date: 20090904
  Transmission Date: 20100115
  Serious: Yes (Hospitalization, Other)
  Sender: FDA-Public Use
  Company Number: JP-PFIZER INC-2009220594

PATIENT
  Age: 80 Year

DRUGS (2)
  1. UNASYN [Suspect]
     Indication: PNEUMONIA
     Dosage: UNK
     Route: 042
     Dates: start: 20090409, end: 20090411
  2. CEFTRIAXONE [Concomitant]
     Route: 042
     Dates: start: 20090412

REACTIONS (2)
  - PNEUMONIA [None]
  - RENAL IMPAIRMENT [None]
